FAERS Safety Report 9583036 (Version 1)
Quarter: 2013Q4

REPORT INFORMATION
  Report Type: Spontaneous
  Country: US (occurrence: US)
  Receive Date: 20131002
  Receipt Date: 20131002
  Transmission Date: 20140711
  Serious: No
  Sender: FDA-Public Use
  Company Number: US-AMGEN-USASP2013044817

PATIENT
  Age: 34 Year
  Sex: Female
  Weight: 56.69 kg

DRUGS (9)
  1. ENBREL [Suspect]
     Indication: PRODUCT USED FOR UNKNOWN INDICATION
     Dosage: 50 MG, QWK
     Route: 058
  2. METFORMIN [Concomitant]
     Dosage: 500 MG, UNK
  3. PLAQUENIL                          /00072602/ [Concomitant]
     Dosage: 200 MG, UNK
  4. SULFASALAZINE [Concomitant]
     Dosage: 500 MG, UNK
     Route: 041
  5. NIFEDIPINE [Concomitant]
     Dosage: 20 MG, UNK
  6. PREDNISONE [Concomitant]
     Dosage: 10 MG, UNK
  7. VITAMIN D                          /00107901/ [Concomitant]
     Dosage: 400 UNIT, UNK
  8. PRENATAL                           /00231801/ [Concomitant]
     Dosage: 1 UNK, UNK
  9. IRON PLUS                          /00292601/ [Concomitant]
     Dosage: 100 UNK, UNK

REACTIONS (2)
  - Condition aggravated [Recovering/Resolving]
  - Pain [Unknown]
